FAERS Safety Report 21702151 (Version 1)
Quarter: 2022Q4

REPORT INFORMATION
  Report Type: Report from Study
  Country: PL (occurrence: PL)
  Receive Date: 20221208
  Receipt Date: 20221208
  Transmission Date: 20230113
  Serious: Yes (Hospitalization, Other)
  Sender: FDA-Public Use
  Company Number: PL-BRISTOL-MYERS SQUIBB COMPANY-BMS-2020-069483

PATIENT
  Age: 58 Year
  Sex: Male
  Weight: 85 kg

DRUGS (5)
  1. CABOZANTINIB [Suspect]
     Active Substance: CABOZANTINIB
     Indication: Renal cell carcinoma
     Dosage: PRIOR TO EVENT ONSET:16-JUL-2020?INTERRUPTED ON 04-AUG-2020 AND DISCONTINUED ON 22-OCT-2020 DUE TO U
     Route: 048
     Dates: start: 20200604, end: 20201022
  2. IPILIMUMAB [Suspect]
     Active Substance: IPILIMUMAB
     Indication: Renal cell carcinoma
     Dosage: PRIOR TO EVENT ONSET:16-JUL-2020?INTERRUPTED ON 04-AUG-2020 AND DISCONTINUED ON 22-OCT-2020 DUE TO U
     Route: 042
     Dates: start: 20200604, end: 20201022
  3. RAMIPRIL [Concomitant]
     Active Substance: RAMIPRIL
     Indication: Product used for unknown indication
     Route: 065
  4. AMLODIPINE BESYLATE\ATORVASTATIN CALCIUM [Concomitant]
     Active Substance: AMLODIPINE BESYLATE\ATORVASTATIN CALCIUM
     Indication: Product used for unknown indication
     Route: 065
  5. OMEPRAZOLE [Concomitant]
     Active Substance: OMEPRAZOLE
     Indication: Product used for unknown indication
     Route: 065

REACTIONS (2)
  - Pulmonary embolism [Recovered/Resolved]
  - Cardiac failure [Not Recovered/Not Resolved]

NARRATIVE: CASE EVENT DATE: 20200817
